FAERS Safety Report 5821859-7 (Version None)
Quarter: 2008Q3

REPORT INFORMATION
  Report Type: 
  Country: None (occurrence: None)
  Receive Date: 20080724
  Receipt Date: 20080715
  Transmission Date: 20090109
  Serious: Yes (Hospitalization)
  Sender: FDA-Public Use
  Company Number: GB-ROCHE-565241

PATIENT
  Sex: Female
  Weight: 61 kg

DRUGS (7)
  1. XELODA [Suspect]
     Indication: BREAST CANCER
     Dosage: ENTERED AS EVERY 3 WEEKS, DAY1-DAY14.
     Route: 048
     Dates: end: 20070730
  2. EPIRUBICIN [Concomitant]
     Indication: BREAST CANCER
     Route: 042
  3. EPIRUBICIN [Concomitant]
     Route: 042
     Dates: start: 20070316, end: 20070601
  4. DEXAMETHASONE [Concomitant]
     Indication: ANTIEMETIC SUPPORTIVE CARE
  5. ONDANSETRON [Concomitant]
     Indication: ANTIEMETIC SUPPORTIVE CARE
  6. CYCLIZINE [Concomitant]
     Indication: ANTIEMETIC SUPPORTIVE CARE
  7. PROCHLORPERAZINE MALEATE [Concomitant]
     Indication: ANTIEMETIC SUPPORTIVE CARE

REACTIONS (2)
  - CHOLELITHIASIS [None]
  - PROTEIN-LOSING GASTROENTEROPATHY [None]
